FAERS Safety Report 22085351 (Version 4)
Quarter: 2023Q2

REPORT INFORMATION
  Report Type: Spontaneous
  Country: JP (occurrence: JP)
  Receive Date: 20230310
  Receipt Date: 20230601
  Transmission Date: 20230722
  Serious: Yes (Other)
  Sender: FDA-Public Use
  Company Number: JP-ONO-2023JP005819

PATIENT
  Age: 74 Year
  Sex: Male

DRUGS (4)
  1. YERVOY [Suspect]
     Active Substance: IPILIMUMAB
     Indication: Pleural mesothelioma malignant
     Dosage: UNK
     Route: 041
  2. YERVOY [Suspect]
     Active Substance: IPILIMUMAB
     Dosage: UNK
     Route: 041
  3. OPDIVO [Suspect]
     Active Substance: NIVOLUMAB
     Indication: Pleural mesothelioma malignant
     Dosage: UNK
     Route: 042
  4. OPDIVO [Suspect]
     Active Substance: NIVOLUMAB
     Dosage: UNK
     Route: 042

REACTIONS (3)
  - Erythema multiforme [Recovering/Resolving]
  - Immune-mediated adverse reaction [Unknown]
  - Immune-mediated arthritis [Recovering/Resolving]
